FAERS Safety Report 13050024 (Version 2)
Quarter: 2016Q4

REPORT INFORMATION
  Report Type: Spontaneous
  Country: US (occurrence: US)
  Receive Date: 20161221
  Receipt Date: 20161226
  Transmission Date: 20170207
  Serious: Yes (Other)
  Sender: FDA-Public Use
  Company Number: PHHY2016US172500

PATIENT
  Age: 30 Week

DRUGS (1)
  1. SANDOSTATIN [Suspect]
     Active Substance: OCTREOTIDE ACETATE
     Indication: HYPERINSULINISM
     Dosage: 3.06 UG/KG, QD
     Route: 042

REACTIONS (2)
  - Off label use [Unknown]
  - Deep vein thrombosis [Unknown]
